FAERS Safety Report 22241349 (Version 2)
Quarter: 2023Q2

REPORT INFORMATION
  Report Type: Report from Study
  Country: US (occurrence: US)
  Receive Date: 20230421
  Receipt Date: 20230424
  Transmission Date: 20230721
  Serious: No
  Sender: FDA-Public Use
  Company Number: US-002147023-NVSC2023US089372

PATIENT
  Age: 54 Year
  Sex: Male
  Weight: 73.469 kg

DRUGS (1)
  1. COSENTYX [Suspect]
     Active Substance: SECUKINUMAB
     Indication: Psoriasis
     Dosage: UNK
     Route: 065
     Dates: end: 20221012

REACTIONS (3)
  - Nasopharyngitis [Unknown]
  - Psoriasis [Unknown]
  - Treatment failure [Unknown]
